FAERS Safety Report 6895183-8 (Version None)
Quarter: 2010Q3

REPORT INFORMATION
  Report Type: 
  Country: None (occurrence: None)
  Receive Date: 20100802
  Receipt Date: 20100720
  Transmission Date: 20110219
  Serious: Yes (Other)
  Sender: FDA-Public Use
  Company Number: PHHY2010DE48170

PATIENT
  Sex: Female

DRUGS (2)
  1. RASILEZ [Suspect]
     Dosage: 150 MG PER DAY
     Dates: start: 20090101
  2. CRATAEGUTT [Concomitant]

REACTIONS (3)
  - GASTRITIS [None]
  - OESOPHAGEAL ULCER [None]
  - RASH [None]
